FAERS Safety Report 5060093-8 (Version None)
Quarter: 2006Q3

REPORT INFORMATION
  Report Type: 
  Country: None (occurrence: None)
  Receive Date: 20060719
  Receipt Date: 20060704
  Transmission Date: 20061208
  Serious: Yes (Hospitalization)
  Sender: FDA-Public Use
  Company Number: S06-FRA-02576-01

PATIENT
  Age: 54 Year
  Sex: Male

DRUGS (8)
  1. SEROPLEX         (ESCITALOPRAM) [Suspect]
     Indication: DEPRESSION
     Dosage: 1 UNITS QD PO
     Route: 048
     Dates: start: 20060516, end: 20060516
  2. BUFLOMEDIL [Suspect]
     Dosage: 300 MG BID PO
     Route: 048
     Dates: end: 20060516
  3. LANSOPRAZOLE [Concomitant]
  4. LEVOTHYROXINE SODIUM [Concomitant]
  5. OXAZEPAM [Concomitant]
  6. FORLAX (MACROGOL) [Concomitant]
  7. PROPOFOL [Concomitant]
  8. SEDATIF PC [Concomitant]

REACTIONS (22)
  - ABDOMINAL PAIN UPPER [None]
  - BLOOD ALBUMIN INCREASED [None]
  - BLOOD CHLORIDE DECREASED [None]
  - BLOOD GLUCOSE INCREASED [None]
  - BLOOD SODIUM DECREASED [None]
  - BLOOD UREA DECREASED [None]
  - CLONUS [None]
  - CONFUSIONAL STATE [None]
  - CONVULSION [None]
  - DIZZINESS [None]
  - HOT FLUSH [None]
  - HYPERHIDROSIS [None]
  - HYPONATRAEMIA [None]
  - MALAISE [None]
  - MYOCLONUS [None]
  - NAUSEA [None]
  - NEUROLOGICAL EXAMINATION ABNORMAL [None]
  - PCO2 DECREASED [None]
  - SALIVARY HYPERSECRETION [None]
  - SPEECH DISORDER [None]
  - TACHYPNOEA [None]
  - TREMOR [None]
